FAERS Safety Report 8910661 (Version 2)
Quarter: 2013Q2

REPORT INFORMATION
  Report Type: Spontaneous
  Country: GB (occurrence: None)
  Receive Date: 20121108
  Receipt Date: 20130530
  Transmission Date: 20140414
  Serious: Yes (Other)
  Sender: FDA-Public Use
  Company Number: GER/UKI/12/0026539

PATIENT
  Age: 64 Year
  Sex: Male

DRUGS (7)
  1. CLOPIDOGREL [Suspect]
     Indication: THROMBOCYTOPENIA
     Route: 048
  2. BISOPROLOL FUMARATE [Suspect]
     Indication: BLOOD PRESSURE
     Route: 048
     Dates: start: 2011, end: 2012
  3. VERAPAMIL [Suspect]
     Indication: ATRIAL FLUTTER
     Route: 048
  4. CYCLOPHOSPHAMIDE (CYCLOPHOSPHAMIDE) [Concomitant]
  5. DOXORUBICIN (DOXORUBICIN) [Concomitant]
  6. PREDNISOLONE (PREDNISOLONE) [Concomitant]
  7. VINCRISTINE SULPHATE [Suspect]

REACTIONS (7)
  - Atrial flutter [None]
  - Abdominal pain upper [None]
  - Somnolence [None]
  - Arthralgia [None]
  - Arthralgia [None]
  - Fatigue [None]
  - Dizziness [None]
